FAERS Safety Report 10515642 (Version 12)
Quarter: 2015Q4

REPORT INFORMATION
  Report Type: Spontaneous
  Country: US (occurrence: US)
  Receive Date: 20141014
  Receipt Date: 20151110
  Transmission Date: 20160304
  Serious: Yes (Death, Hospitalization, Other)
  Sender: FDA-Public Use
  Company Number: US-JNJFOC-20141007358

PATIENT
  Age: 73 Year
  Sex: Female
  Weight: 78.46 kg

DRUGS (10)
  1. TRACLEER [Concomitant]
     Active Substance: BOSENTAN
     Route: 065
  2. ADEMPAS [Suspect]
     Active Substance: RIOCIGUAT
     Indication: PULMONARY ARTERIAL HYPERTENSION
     Route: 048
     Dates: start: 20140320
  3. FESOTERODINE [Concomitant]
     Active Substance: FESOTERODINE
     Route: 065
  4. ADEMPAS [Suspect]
     Active Substance: RIOCIGUAT
     Indication: PULMONARY ARTERIAL HYPERTENSION
     Route: 048
  5. XARELTO [Suspect]
     Active Substance: RIVAROXABAN
     Indication: PRODUCT USED FOR UNKNOWN INDICATION
     Route: 048
  6. ADEMPAS [Suspect]
     Active Substance: RIOCIGUAT
     Indication: PULMONARY ARTERIAL HYPERTENSION
     Route: 048
  7. ADEMPAS [Suspect]
     Active Substance: RIOCIGUAT
     Indication: PULMONARY ARTERIAL HYPERTENSION
     Route: 048
  8. ADEMPAS [Suspect]
     Active Substance: RIOCIGUAT
     Indication: PULMONARY ARTERIAL HYPERTENSION
     Route: 048
  9. ADEMPAS [Suspect]
     Active Substance: RIOCIGUAT
     Indication: PULMONARY ARTERIAL HYPERTENSION
     Route: 048
     Dates: start: 20140319
  10. WARFARIN [Concomitant]
     Active Substance: WARFARIN
     Route: 065

REACTIONS (36)
  - Chronic obstructive pulmonary disease [Fatal]
  - Hiatus hernia [Unknown]
  - Cystitis [Recovered/Resolved]
  - Hernia pain [Unknown]
  - Oxygen saturation decreased [Unknown]
  - Chest pain [Unknown]
  - Gastrointestinal disorder [Unknown]
  - Multiple allergies [Unknown]
  - Oxygen supplementation [Unknown]
  - Sinusitis [Unknown]
  - Dyspnoea exertional [Unknown]
  - Blood pressure systolic decreased [Unknown]
  - Epistaxis [Unknown]
  - Nasal dryness [Unknown]
  - Productive cough [Unknown]
  - Dizziness [Unknown]
  - Intentional product misuse [Unknown]
  - Kidney infection [Recovered/Resolved]
  - Dyspnoea [Recovered/Resolved]
  - Weight decreased [Unknown]
  - Secretion discharge [Unknown]
  - Candida infection [Unknown]
  - Dyspnoea [Unknown]
  - Cough [Unknown]
  - Dry skin [Unknown]
  - Urinary tract infection [Unknown]
  - Seasonal allergy [Unknown]
  - Constipation [Unknown]
  - Oxygen saturation abnormal [Unknown]
  - Gastrooesophageal reflux disease [Unknown]
  - Dyspnoea [Recovered/Resolved]
  - Drug dose omission [Unknown]
  - Bladder disorder [Recovered/Resolved]
  - Sinus congestion [Unknown]
  - Paranasal sinus hypersecretion [Unknown]
  - Pruritus [Unknown]

NARRATIVE: CASE EVENT DATE: 20140610
